FAERS Safety Report 8371578-0 (Version None)
Quarter: 2012Q2

REPORT INFORMATION
  Report Type: 
  Country: None (occurrence: None)
  Receive Date: 20120518
  Receipt Date: 20120507
  Transmission Date: 20120825
  Serious: No
  Sender: FDA-Public Use
  Company Number: US-ASTRAZENECA-2012SE29692

PATIENT
  Age: 77 Year
  Sex: Female

DRUGS (2)
  1. ARIMIDEX [Suspect]
     Route: 048
  2. CRESTOR [Suspect]
     Route: 048

REACTIONS (5)
  - MYALGIA [None]
  - MUSCLE TIGHTNESS [None]
  - TENDERNESS [None]
  - INSOMNIA [None]
  - HORMONE LEVEL ABNORMAL [None]
